FAERS Safety Report 6870739-7 (Version None)
Quarter: 2010Q3

REPORT INFORMATION
  Report Type: 
  Country: None (occurrence: None)
  Receive Date: 20100723
  Receipt Date: 20100721
  Transmission Date: 20110219
  Serious: Yes (Death, Life-Threatening, Hospitalization)
  Sender: FDA-Public Use
  Company Number: PHHY2010JP37865

PATIENT
  Age: 25 Year
  Sex: Female

DRUGS (3)
  1. TEGRETOL [Suspect]
     Indication: SCHIZOPHRENIA
     Dosage: 0.4 G, DAILY
     Route: 048
     Dates: start: 20031009, end: 20031019
  2. TEGRETOL [Suspect]
     Indication: CONVULSION
  3. GRANULOCYTE COLONY STIMULATING FACTOR [Suspect]
     Dosage: UNK

REACTIONS (10)
  - BLOOD PRESSURE DECREASED [None]
  - CONVULSION [None]
  - DISSEMINATED INTRAVASCULAR COAGULATION [None]
  - ENCEPHALOPATHY [None]
  - MULTI-ORGAN FAILURE [None]
  - NEUROLEPTIC MALIGNANT SYNDROME [None]
  - OXYGEN CONSUMPTION DECREASED [None]
  - PANCYTOPENIA [None]
  - PYREXIA [None]
  - SEPTIC SHOCK [None]
